FAERS Safety Report 11198580 (Version 2)
Quarter: 2015Q2

REPORT INFORMATION
  Report Type: Spontaneous
  Country: US (occurrence: US)
  Receive Date: 20150618
  Receipt Date: 20150619
  Transmission Date: 20150821
  Serious: Yes (Life-Threatening, Other)
  Sender: FDA-Public Use
  Company Number: US-ELI_LILLY_AND_COMPANY-US201506006113

PATIENT
  Age: 23 Year
  Sex: Male

DRUGS (2)
  1. TRAZODONE [Suspect]
     Active Substance: TRAZODONE HYDROCHLORIDE
     Indication: PRODUCT USED FOR UNKNOWN INDICATION
     Dosage: UNK, UNKNOWN
  2. OLANZAPINE. [Suspect]
     Active Substance: OLANZAPINE
     Indication: OVERDOSE
     Dosage: 900 MG, SINGLE
     Route: 065

REACTIONS (7)
  - Clonus [Unknown]
  - Hyperthermia [Unknown]
  - Hyperreflexia [Unknown]
  - Overdose [Unknown]
  - Anticholinergic syndrome [Unknown]
  - Serotonin syndrome [Unknown]
  - Tachycardia [Unknown]
